FAERS Safety Report 7779033-3 (Version None)
Quarter: 2011Q3

REPORT INFORMATION
  Report Type: 
  Country: None (occurrence: None)
  Receive Date: 20110926
  Receipt Date: 20110912
  Transmission Date: 20111222
  Serious: Yes (Other)
  Sender: FDA-Public Use
  Company Number: GB-NOVEN-11GB003195

PATIENT
  Age: 26 Year
  Sex: Female

DRUGS (1)
  1. PAROXETINE HYDROCHLORIDE [Suspect]
     Indication: PRODUCT USED FOR UNKNOWN INDICATION

REACTIONS (9)
  - DIZZINESS [None]
  - INTENTIONAL SELF-INJURY [None]
  - AGITATION [None]
  - SUICIDAL IDEATION [None]
  - MUSCLE SPASMS [None]
  - FEELING ABNORMAL [None]
  - VERTIGO [None]
  - PAIN [None]
  - HEADACHE [None]
